FAERS Safety Report 13973938 (Version 11)
Quarter: 2018Q4

REPORT INFORMATION
  Report Type: Spontaneous
  Country: DE (occurrence: DE)
  Receive Date: 20170915
  Receipt Date: 20181009
  Transmission Date: 20190204
  Serious: Yes (Other)
  Sender: FDA-Public Use
  Company Number: DE-PFIZER INC-2017393933

PATIENT
  Age: 60 Year
  Sex: Male
  Weight: 80 kg

DRUGS (23)
  1. TRANEXAMIC ACID. [Interacting]
     Active Substance: TRANEXAMIC ACID
     Dosage: 1 G, UNK
     Dates: start: 20170831
  2. SEVORANE [Concomitant]
     Active Substance: SEVOFLURANE
     Dosage: UNK
     Dates: start: 20170831
  3. RED BLOOD CELLS, CONCENTRATED [Concomitant]
     Active Substance: HUMAN RED BLOOD CELL
     Dosage: 250 ML, UNK
     Dates: start: 20170831
  4. HEPARIN-RATIOPHARM [Interacting]
     Active Substance: HEPARIN SODIUM
     Dosage: 200 MG, ONCE DAILY
  5. NORADRENALINE [Suspect]
     Active Substance: NOREPINEPHRINE
     Dosage: PERIOPERATIVE TOTAL DOSE 115 UG (12 SINGLE DOSES OF 5-15 UG)
     Dates: start: 20170831
  6. ATORVASTATIN [Concomitant]
     Active Substance: ATORVASTATIN
     Dosage: 40 MG, ONCE A DAY (0-0-1)
  7. INZOLEN [Concomitant]
     Active Substance: MAGNESIUM ASPARTATE\POTASSIUM ASPARTATE
     Dosage: 30 ML, UNK
     Dates: start: 20170831
  8. CUSTODIOL PERFUSIONSLOESUNG [Concomitant]
     Dosage: 950 ML, UNK
     Dates: start: 20170831
  9. TRANEXAMIC ACID. [Suspect]
     Active Substance: TRANEXAMIC ACID
     Dosage: 10 ML, UNK
     Dates: start: 20170831
  10. TRANEXAMIC ACID. [Interacting]
     Active Substance: TRANEXAMIC ACID
     Dosage: 2 G, UNK
     Dates: start: 20170831
  11. HCT [Concomitant]
     Active Substance: HYDROCHLOROTHIAZIDE
     Dosage: 25 MG, 1X/DAY
  12. ASPIRIN. [Concomitant]
     Active Substance: ASPIRIN
     Dosage: 100 MG, ONCE A DAY(0-1-0)
  13. MAGNESIUM VERLA [Concomitant]
     Active Substance: MAGNESIUM
     Dosage: 1 DF, 1X/DAY
  14. STEROFUNDIN [Concomitant]
     Active Substance: CALCIUM CHLORIDE\MAGNESIUM CHLORIDE\POTASSIUM CHLORIDE\SODIUM ACETATE\SODIUM CHLORIDE
     Dosage: 1450 ML, UNK
     Dates: start: 20170831
  15. BISOPROLOL [Concomitant]
     Active Substance: BISOPROLOL
     Dosage: 7.5 MG, ONCE A DAY(1-0-2)
  16. NORADRENALINE [Suspect]
     Active Substance: NOREPINEPHRINE
     Dosage: 0.68 UG/KG/MIN APPLIED 3.5 HRS POSTOPERATIVE
  17. VALSARTAN. [Concomitant]
     Active Substance: VALSARTAN
     Dosage: 40 MG, ONCE A DAY(1-0-0)
  18. AMIODARONE [Concomitant]
     Active Substance: AMIODARONE
     Dosage: 200 MG, 1X/DAY
  19. EPLERENONE. [Concomitant]
     Active Substance: EPLERENONE
     Dosage: 25 MG, 1X/DAY
  20. CLEXANE [Concomitant]
     Active Substance: ENOXAPARIN SODIUM
     Dosage: 0.4 ML, 1X/DAY, (0-0-1)
  21. HEPARIN-RATIOPHARM [Interacting]
     Active Substance: HEPARIN SODIUM
     Dosage: 45000 IU HEPARIN+ 10000 IU HEPARIN VIA THE HEART- LUNG-MACHINE
     Route: 042
     Dates: start: 20170831
  22. HEPARIN-RATIOPHARM [Interacting]
     Active Substance: HEPARIN SODIUM
     Dosage: 200 MG, ONCE DAILY
  23. HEPARIN-RATIOPHARM [Interacting]
     Active Substance: HEPARIN SODIUM
     Dosage: 200 MG, ONCE DAILY

REACTIONS (7)
  - Haemoglobin increased [Recovered/Resolved]
  - Vasodilatation [Recovered/Resolved]
  - Blood creatinine increased [Unknown]
  - Drug ineffective [Unknown]
  - Renal failure [Unknown]
  - Therapeutic response decreased [Unknown]
  - Drug interaction [Unknown]

NARRATIVE: CASE EVENT DATE: 20170831
